FAERS Safety Report 22915092 (Version 4)
Quarter: 2024Q2

REPORT INFORMATION
  Report Type: Spontaneous
  Country: CA (occurrence: CA)
  Receive Date: 20230907
  Receipt Date: 20240617
  Transmission Date: 20240716
  Serious: Yes (Hospitalization, Other)
  Sender: FDA-Public Use
  Company Number: CA-002147023-PHHY2017CA006479

PATIENT
  Age: 67 Year
  Sex: Male

DRUGS (30)
  1. AMOXICILLIN [Suspect]
     Active Substance: AMOXICILLIN
     Indication: Respiratory tract infection fungal
     Dosage: UNK, 2019
     Route: 048
  2. XOLAIR [Suspect]
     Active Substance: OMALIZUMAB
     Dosage: 300 MG, BIW (PRE-FILLED SYRINGE), 26-JUN-2019 00:00
     Route: 058
  3. XOLAIR [Suspect]
     Active Substance: OMALIZUMAB
     Dosage: 300 MG, BIW (PRE-FILLED SYRINGE), 28-JUN-2018 00:00
     Route: 058
  4. XOLAIR [Suspect]
     Active Substance: OMALIZUMAB
     Dosage: 300 MG, BIW (PRE-FILLED SYRINGE), 06-JUN-2019 00:00
     Route: 058
  5. XOLAIR [Suspect]
     Active Substance: OMALIZUMAB
     Dosage: 300 MG, BIW (PRE-FILLED SYRINGE), 02-JAN-2020 00:00
     Route: 058
  6. XOLAIR [Suspect]
     Active Substance: OMALIZUMAB
     Dosage: 300 MG, BIW (PRE-FILLED SYRINGE), 17-NOV-2022 00:00
     Route: 058
  7. XOLAIR [Suspect]
     Active Substance: OMALIZUMAB
     Dosage: 300 MG, BIW (PRE-FILLED SYRINGE), 27-FEB-2018 00:00
     Route: 058
  8. XOLAIR [Suspect]
     Active Substance: OMALIZUMAB
     Dosage: 300 MG, BIW (PRE-FILLED SYRINGE), 28-MAY-2019 00:00
     Route: 058
  9. XOLAIR [Suspect]
     Active Substance: OMALIZUMAB
     Dosage: 300 MG, BIW (PRE-FILLED SYRINGE), 10-MAY-2018 00:00
     Route: 058
  10. XOLAIR [Suspect]
     Active Substance: OMALIZUMAB
     Dosage: 300 MG, BIW (PRE-FILLED SYRINGE), 11-JUL-2018 00:00
     Route: 058
  11. XOLAIR [Suspect]
     Active Substance: OMALIZUMAB
     Dosage: 300 MG, BIW (PRE-FILLED SYRINGE), 12-APR-2018 00:00
     Route: 058
  12. XOLAIR [Suspect]
     Active Substance: OMALIZUMAB
     Dosage: 300 MG, BIW (PRE-FILLED SYRINGE), 14-JUN-2018 00:00
     Route: 058
  13. XOLAIR [Suspect]
     Active Substance: OMALIZUMAB
     Dosage: 300 MG, BIW (PRE-FILLED SYRINGE), 2019
     Route: 058
  14. XOLAIR [Suspect]
     Active Substance: OMALIZUMAB
     Indication: Asthma
     Dosage: 300 MG, BIW (PRE-FILLED SYRINGE), 26-SEP-2016 00:00
     Route: 058
  15. XOLAIR [Suspect]
     Active Substance: OMALIZUMAB
     Dosage: 300 MG, BIW (PRE-FILLED SYRINGE), 27-APR-2018 00:00
     Route: 058
  16. XOLAIR [Suspect]
     Active Substance: OMALIZUMAB
     Dosage: 300 MG, BIW (PRE-FILLED SYRINGE), 28-MAY-2020 00:00
     Route: 058
  17. XOLAIR [Suspect]
     Active Substance: OMALIZUMAB
     Dosage: 300 MG, BIW (PRE-FILLED SYRINGE), 28-SEP-2016 00:00
     Route: 058
  18. XOLAIR [Suspect]
     Active Substance: OMALIZUMAB
     Dosage: 300 MG, BIW, 04-AUG-2020 00:00
     Route: 058
  19. XOLAIR [Suspect]
     Active Substance: OMALIZUMAB
     Dosage: 300 MG, BIW, 07-JUL-2020 00:00
     Route: 058
  20. XOLAIR [Suspect]
     Active Substance: OMALIZUMAB
     Indication: Asthma
     Dosage: 300 MG, BIW, 17-JUN-2020 00:00
     Route: 058
  21. XOLAIR [Suspect]
     Active Substance: OMALIZUMAB
     Dosage: 300 MG, BIW, 21-AUG-2020 00:00
     Route: 058
  22. XOLAIR [Suspect]
     Active Substance: OMALIZUMAB
     Dosage: UNK (PRE-FILLED SYRINGE), 01-JUN-2018 00:00
     Route: 058
  23. XOLAIR [Suspect]
     Active Substance: OMALIZUMAB
     Dosage: UNK (PRE-FILLED SYRINGE), 10-NOV-2020 00:00
     Route: 058
  24. XOLAIR [Suspect]
     Active Substance: OMALIZUMAB
     Dosage: UNK (PRE-FILLED SYRINGE), 14-JUN-2019 00:00
     Route: 058
  25. XOLAIR [Suspect]
     Active Substance: OMALIZUMAB
     Dosage: UNK (PRE-FILLED SYRINGE), 15-DEC-2020 00:00
     Route: 058
  26. ADVAIR HFA [Concomitant]
     Active Substance: FLUTICASONE PROPIONATE\SALMETEROL XINAFOATE
     Indication: Product used for unknown indication
     Dosage: 2 DF, BID (STRENGTH 250)
     Route: 065
  27. BREO ELLIPTA [Concomitant]
     Active Substance: FLUTICASONE FUROATE\VILANTEROL TRIFENATATE
     Indication: Product used for unknown indication
     Dosage: UNK
     Route: 065
  28. METRONIDAZOLE [Concomitant]
     Active Substance: METRONIDAZOLE
     Indication: Product used for unknown indication
     Dosage: UNK, TID
     Route: 065
  29. RAMIPRIL [Concomitant]
     Active Substance: RAMIPRIL
     Indication: Hypertension
     Dosage: UNK
     Route: 065
  30. VENTOLIN [Concomitant]
     Active Substance: ALBUTEROL SULFATE
     Indication: Product used for unknown indication
     Dosage: UNK, PRN (STRENGTH: 100)
     Route: 065

REACTIONS (39)
  - Nephrolithiasis [Unknown]
  - Pneumonia [Unknown]
  - Respiratory tract infection fungal [Unknown]
  - Diverticulitis [Unknown]
  - Abdominal discomfort [Unknown]
  - Chest pain [Not Recovered/Not Resolved]
  - Oesophageal pain [Unknown]
  - Parasitic gastroenteritis [Unknown]
  - Anal incontinence [Unknown]
  - Muscle spasms [Recovered/Resolved]
  - Musculoskeletal disorder [Recovered/Resolved]
  - Asthenia [Unknown]
  - Irritability [Unknown]
  - Weight decreased [Unknown]
  - General physical health deterioration [Not Recovered/Not Resolved]
  - Flatulence [Recovering/Resolving]
  - Viral infection [Recovering/Resolving]
  - Cough [Recovering/Resolving]
  - Dysphonia [Not Recovered/Not Resolved]
  - Umbilical hernia [Unknown]
  - Blood pressure increased [Not Recovered/Not Resolved]
  - Wheezing [Unknown]
  - Mobility decreased [Unknown]
  - COVID-19 [Recovered/Resolved]
  - Malaise [Unknown]
  - Skin discolouration [Unknown]
  - Tremor [Unknown]
  - Dyspnoea [Recovered/Resolved]
  - Dyspnoea [Unknown]
  - Asthma [Recovering/Resolving]
  - Weight increased [Unknown]
  - Sinus disorder [Unknown]
  - Sinusitis [Unknown]
  - Diarrhoea [Unknown]
  - Adverse reaction [Unknown]
  - Product dose omission issue [Unknown]
  - Incorrect dose administered [Unknown]
  - Inappropriate schedule of product administration [Unknown]
  - Off label use [Unknown]

NARRATIVE: CASE EVENT DATE: 20170112
